FAERS Safety Report 22356134 (Version 1)
Quarter: 2023Q2

REPORT INFORMATION
  Report Type: Spontaneous
  Country: US (occurrence: US)
  Receive Date: 20230523
  Receipt Date: 20230523
  Transmission Date: 20230721
  Serious: Yes (Other)
  Sender: FDA-Public Use
  Company Number: US-002147023-NVSC2023US114798

PATIENT

DRUGS (3)
  1. TABRECTA [Suspect]
     Active Substance: CAPMATINIB
     Indication: Non-small cell lung cancer metastatic
     Dosage: 400 MG, BID
     Route: 048
     Dates: start: 20230301, end: 20230314
  2. TABRECTA [Suspect]
     Active Substance: CAPMATINIB
     Dosage: 300 MG, BID
     Route: 048
  3. TABRECTA [Suspect]
     Active Substance: CAPMATINIB
     Dosage: 200 MG, BID
     Route: 048

REACTIONS (1)
  - Inflammation [Recovered/Resolved]
